FAERS Safety Report 8424480-X (Version None)
Quarter: 2012Q2

REPORT INFORMATION
  Report Type: 
  Country: None (occurrence: None)
  Receive Date: 20120610
  Receipt Date: 20120530
  Transmission Date: 20120825
  Serious: Yes (Death, Hospitalization)
  Sender: FDA-Public Use
  Company Number: JP-AMGEN-JPNSP2012030186

PATIENT
  Age: 69 Year
  Sex: Female

DRUGS (9)
  1. PREDNISOLONE [Suspect]
     Indication: INTERSTITIAL LUNG DISEASE
     Route: 048
  2. EPADEL S [Concomitant]
     Indication: DYSLIPIDAEMIA
     Route: 048
  3. JUVELA N [Concomitant]
     Indication: SCLERODERMA
     Route: 048
  4. CLINORIL [Concomitant]
     Indication: SCLERODERMA
     Route: 048
  5. ANPLAG [Concomitant]
     Indication: SCLERODERMA
     Route: 048
  6. ACTONEL [Concomitant]
     Indication: OSTEOPOROSIS
     Route: 048
  7. LOSARTAN POTASSIUM [Concomitant]
     Indication: HYPERTENSION
     Dosage: UNKNOWN
     Route: 048
  8. FAMOTIDINE [Concomitant]
     Indication: GASTRITIS PROPHYLAXIS
     Route: 048
  9. RANMARK [Suspect]
     Indication: METASTASES TO BONE
     Dosage: 120 MG, UNK
     Route: 058
     Dates: start: 20120501

REACTIONS (1)
  - CEREBRAL INFARCTION [None]
